FAERS Safety Report 9292896 (Version 1)
Quarter: 2013Q2

REPORT INFORMATION
  Report Type: Spontaneous
  Country: US (occurrence: None)
  Receive Date: 20130513
  Receipt Date: 20130513
  Transmission Date: 20140414
  Serious: Yes (Other)
  Sender: FDA-Public Use
  Company Number: 2013P1005383

PATIENT
  Age: 12 Year
  Sex: Female

DRUGS (4)
  1. CHLORPROMAZINE [Suspect]
     Indication: SCHIZOPHRENIA, PARANOID TYPE
  2. ESCITALOPRAM [Concomitant]
  3. BUPROPION [Concomitant]
  4. CLOZAPINE [Concomitant]

REACTIONS (4)
  - Hallucination, auditory [None]
  - Neutropenia [None]
  - Leukopenia [None]
  - Suicide attempt [None]
